FAERS Safety Report 7120079-6 (Version None)
Quarter: 2010Q4

REPORT INFORMATION
  Report Type: 
  Country: None (occurrence: None)
  Receive Date: 20101123
  Receipt Date: 20101109
  Transmission Date: 20110411
  Serious: Yes (Hospitalization)
  Sender: FDA-Public Use
  Company Number: GXKR2010CN12645

PATIENT
  Age: 71 Year
  Sex: Male

DRUGS (3)
  1. WARFARIN (NGX) [Suspect]
     Route: 065
  2. WARFARIN (NGX) [Interacting]
     Dosage: 2.25 MG, QD
     Route: 065
  3. HERBAL EXTRACTS NOS [Interacting]
     Dosage: 10 ML, QD
     Route: 065

REACTIONS (7)
  - ALTERED STATE OF CONSCIOUSNESS [None]
  - CEREBRAL HAEMATOMA [None]
  - CONFUSIONAL STATE [None]
  - CRANIECTOMY [None]
  - DRUG INTERACTION [None]
  - HEMIPLEGIA [None]
  - RESTLESSNESS [None]
